FAERS Safety Report 14658242 (Version 1)
Quarter: 2018Q1

REPORT INFORMATION
  Report Type: Report from Study
  Country: BE (occurrence: BE)
  Receive Date: 20180320
  Receipt Date: 20180320
  Transmission Date: 20180509
  Serious: Yes (Hospitalization, Other)
  Sender: FDA-Public Use
  Company Number: BE-ROCHE-1949555

PATIENT
  Age: 91 Year
  Sex: Male
  Weight: 64 kg

DRUGS (9)
  1. PREDNISONE. [Suspect]
     Active Substance: PREDNISONE
     Route: 065
     Dates: start: 20170511
  2. XARELTO [Suspect]
     Active Substance: RIVAROXABAN
     Indication: CONSTIPATION
     Route: 065
     Dates: start: 2014, end: 20170612
  3. CYCLOPHOSPHAMIDE. [Suspect]
     Active Substance: CYCLOPHOSPHAMIDE
     Indication: DIFFUSE LARGE B-CELL LYMPHOMA
     Route: 065
     Dates: start: 20170511, end: 20170629
  4. PREDNISONE. [Suspect]
     Active Substance: PREDNISONE
     Indication: DIFFUSE LARGE B-CELL LYMPHOMA
     Route: 065
     Dates: start: 20170504, end: 20170508
  5. RITUXIMAB. [Suspect]
     Active Substance: RITUXIMAB
     Indication: DIFFUSE LARGE B-CELL LYMPHOMA
     Dosage: LAST DOSE OF SC RITUXIMAB : 08/JUN/2017 AT DOSE OF 1400 MG
     Route: 058
     Dates: start: 20170608, end: 20170629
  6. DOXORUBICIN [Suspect]
     Active Substance: DOXORUBICIN
     Indication: DIFFUSE LARGE B-CELL LYMPHOMA
     Route: 065
     Dates: start: 20170511, end: 20170629
  7. VINCRISTINE [Suspect]
     Active Substance: VINCRISTINE
     Route: 065
     Dates: start: 20170511
  8. RITUXIMAB. [Suspect]
     Active Substance: RITUXIMAB
     Indication: DIFFUSE LARGE B-CELL LYMPHOMA
     Dosage: LAST DOSE OF IV RITUXIMAB : 11/MAY/2017 AT DOSE OF 645 MG
     Route: 042
     Dates: start: 20170511
  9. VINCRISTINE [Suspect]
     Active Substance: VINCRISTINE
     Indication: DIFFUSE LARGE B-CELL LYMPHOMA
     Route: 065
     Dates: start: 20170504, end: 20170508

REACTIONS (6)
  - Renal failure [Recovered/Resolved]
  - Diarrhoea [Recovered/Resolved]
  - Cystitis haemorrhagic [Recovered/Resolved with Sequelae]
  - Haematochezia [Recovered/Resolved with Sequelae]
  - Urinary retention [Recovered/Resolved with Sequelae]
  - Haemorrhoids [Recovered/Resolved with Sequelae]

NARRATIVE: CASE EVENT DATE: 20170611
